FAERS Safety Report 5004933-7 (Version None)
Quarter: 2006Q1

REPORT INFORMATION
  Report Type: 
  Country: None (occurrence: None)
  Receive Date: 20060321
  Receipt Date: 20060214
  Transmission Date: 20060701
  Serious: No
  Sender: FDA-Public Use
  Company Number: YPA20050636

PATIENT
  Age: 77 Year
  Sex: Male

DRUGS (9)
  1. VESICARE [Suspect]
     Indication: HYPERTONIC BLADDER
     Dosage: SEE IMAGE
     Route: 048
     Dates: start: 20050516, end: 20050801
  2. VESICARE [Suspect]
     Indication: HYPERTONIC BLADDER
     Dosage: SEE IMAGE
     Route: 048
     Dates: start: 20050801
  3. PRAVACHOL [Concomitant]
  4. ZETIA [Concomitant]
  5. CELEBREX [Concomitant]
  6. LOTREL [Concomitant]
  7. TOPROL-XL [Concomitant]
  8. FLOMAX [Concomitant]
  9. PLETAL (CILOSTAZOL) [Concomitant]

REACTIONS (1)
  - DRUG INEFFECTIVE [None]
